FAERS Safety Report 24869107 (Version 2)
Quarter: 2025Q1

REPORT INFORMATION
  Report Type: Spontaneous
  Country: JP (occurrence: JP)
  Receive Date: 20250121
  Receipt Date: 20250131
  Transmission Date: 20250409
  Serious: Yes (Hospitalization)
  Sender: TEVA
  Company Number: JP-TEVA-VS-3286677

PATIENT
  Age: 54 Year
  Sex: Male

DRUGS (9)
  1. CLOPIDOGREL [Suspect]
     Active Substance: CLOPIDOGREL BISULFATE
     Indication: Cerebrovascular accident
     Route: 065
  2. ISONIAZID [Suspect]
     Active Substance: ISONIAZID
     Indication: Meningitis tuberculous
     Route: 065
  3. PYRAZINAMIDE [Suspect]
     Active Substance: PYRAZINAMIDE
     Indication: Meningitis tuberculous
     Route: 065
  4. ETHAMBUTOL [Suspect]
     Active Substance: ETHAMBUTOL HYDROCHLORIDE
     Indication: Meningitis tuberculous
     Route: 065
  5. LEVOFLOXACIN [Concomitant]
     Active Substance: LEVOFLOXACIN
     Indication: Meningitis tuberculous
     Route: 065
  6. DEXAMETHASONE [Suspect]
     Active Substance: DEXAMETHASONE
     Indication: Paradoxical drug reaction
     Route: 048
  7. DEXAMETHASONE [Suspect]
     Active Substance: DEXAMETHASONE
     Indication: Paradoxical drug reaction
     Dosage: DOSE REDUCED
     Route: 048
  8. DEXAMETHASONE [Suspect]
     Active Substance: DEXAMETHASONE
     Indication: Paradoxical drug reaction
     Route: 048
  9. RIFABUTIN [Concomitant]
     Active Substance: RIFABUTIN
     Indication: Disseminated tuberculosis
     Route: 065

REACTIONS (8)
  - Hemianopia [Unknown]
  - Hemiplegia [Unknown]
  - Obesity [Unknown]
  - Metabolic syndrome [Unknown]
  - Paradoxical drug reaction [Unknown]
  - Drug ineffective [Unknown]
  - Cerebrovascular accident [Unknown]
  - Urinary tract infection [Unknown]
